FAERS Safety Report 8598629-2 (Version None)
Quarter: 2012Q3

REPORT INFORMATION
  Report Type: 
  Country: None (occurrence: None)
  Receive Date: 20120816
  Receipt Date: 20120815
  Transmission Date: 20120928
  Serious: Yes (Hospitalization, Disabling, Other)
  Sender: FDA-Public Use
  Company Number: US-PFIZER INC-2012135068

PATIENT
  Age: 34 Year
  Sex: Female
  Weight: 88 kg

DRUGS (8)
  1. PHENERGAN HCL [Concomitant]
     Indication: NAUSEA
     Dosage: 25 MG EVERY 6 HOURS, AS NEEDED
  2. ASPIRIN [Concomitant]
     Indication: FACTOR V DEFICIENCY
     Dosage: 81 MG, 2X/DAY
  3. PROTONIX [Suspect]
     Indication: GASTROINTESTINAL ULCER
     Dosage: 40 MG, DAILY (ONCE A DAY)
     Route: 048
     Dates: start: 20110101
  4. PLAVIX [Concomitant]
     Indication: FACTOR V DEFICIENCY
     Dosage: 75 MG, DAILY
  5. TOPAMAX [Concomitant]
     Indication: MIGRAINE PROPHYLAXIS
     Dosage: 200 MG, DAILY
  6. ZANTAC [Concomitant]
     Indication: GASTROINTESTINAL ULCER
     Dosage: 150 MG, 2X/DAY
     Dates: start: 20090101
  7. HYDROCODONE [Concomitant]
     Indication: MIGRAINE
     Dosage: 5/325 MG EVERY 6 HOURS, AS NEEDED
  8. RELPAX [Concomitant]
     Dosage: UNK

REACTIONS (4)
  - MYOCARDIAL INFARCTION [None]
  - PROCEDURAL HAEMORRHAGE [None]
  - CONVULSION [None]
  - DRUG LEVEL CHANGED [None]
